FAERS Safety Report 5306830-6 (Version None)
Quarter: 2007Q2

REPORT INFORMATION
  Report Type: 
  Country: None (occurrence: None)
  Receive Date: 20070420
  Receipt Date: 20070420
  Transmission Date: 20071010
  Serious: Yes (Hospitalization)
  Sender: FDA-Public Use
  Company Number: None

PATIENT
  Sex: Male
  Weight: 125.6464 kg

DRUGS (1)
  1. OXALIPLATIN 325MG [Suspect]
     Dosage: 325MG   IV
     Route: 042

REACTIONS (3)
  - PALLOR [None]
  - STRIDOR [None]
  - THROAT TIGHTNESS [None]
